FAERS Safety Report 9176237 (Version 1)
Quarter: 2013Q1

REPORT INFORMATION
  Report Type: Spontaneous
  Country: BR (occurrence: BR)
  Receive Date: 20130321
  Receipt Date: 20130321
  Transmission Date: 20140127
  Serious: Yes (Hospitalization)
  Sender: FDA-Public Use
  Company Number: BR-BIOGENIDEC-2013BI025313

PATIENT
  Age: 74 Year
  Sex: Female
  Weight: 90 kg

DRUGS (6)
  1. AVONEX [Suspect]
     Indication: MULTIPLE SCLEROSIS
     Route: 030
     Dates: start: 20061213, end: 20130226
  2. AVONEX [Suspect]
     Indication: MULTIPLE SCLEROSIS
     Route: 030
     Dates: start: 20130305
  3. ZANIDIP [Concomitant]
     Indication: HYPERTENSION
     Route: 048
  4. DIUPRESS [Concomitant]
     Indication: FLUID RETENTION
     Route: 048
  5. DAFORIN [Concomitant]
     Indication: DEPRESSION
     Route: 048
  6. PURAN T4 [Concomitant]
     Indication: THYROID DISORDER
     Route: 048

REACTIONS (2)
  - Application site pain [Recovered/Resolved]
  - Erysipelas [Recovered/Resolved]
